FAERS Safety Report 25361452 (Version 2)
Quarter: 2025Q4

REPORT INFORMATION
  Report Type: Report from Study
  Country: GB (occurrence: GB)
  Receive Date: 20250527
  Receipt Date: 20251105
  Transmission Date: 20260117
  Serious: Yes (Hospitalization)
  Sender: ROCHE
  Company Number: GB-ROCHE-1966538

PATIENT
  Sex: Female

DRUGS (1)
  1. TOCILIZUMAB [Suspect]
     Active Substance: TOCILIZUMAB
     Indication: Rheumatoid arthritis
     Route: 058
     Dates: start: 20151019

REACTIONS (5)
  - Candida infection [Unknown]
  - Malaise [Unknown]
  - Cerebrovascular accident [Unknown]
  - Off label use [Unknown]
  - Speech disorder [Unknown]
